FAERS Safety Report 13710591 (Version 1)
Quarter: 2017Q3

REPORT INFORMATION
  Report Type: Spontaneous
  Country: US (occurrence: US)
  Receive Date: 20170703
  Receipt Date: 20170703
  Transmission Date: 20171127
  Serious: No
  Sender: FDA-Public Use
  Company Number: US-ASTRAZENECA-2017SE67840

PATIENT
  Age: 74 Year
  Sex: Male

DRUGS (2)
  1. NEXIUM [Suspect]
     Active Substance: ESOMEPRAZOLE MAGNESIUM
     Indication: BARRETT^S OESOPHAGUS
     Dosage: 2 FOR A WEEK OR 2
     Route: 048
  2. NEXIUM [Suspect]
     Active Substance: ESOMEPRAZOLE MAGNESIUM
     Indication: BARRETT^S OESOPHAGUS
     Dosage: 1-2, 40 MG PER DAY
     Route: 048

REACTIONS (7)
  - Product use in unapproved indication [Unknown]
  - Dysphonia [Unknown]
  - Intentional overdose [Unknown]
  - Oropharyngeal pain [Unknown]
  - Dysphagia [Unknown]
  - Off label use [Unknown]
  - Therapeutic response unexpected [Unknown]
